FAERS Safety Report 16997183 (Version 1)
Quarter: 2019Q4

REPORT INFORMATION
  Report Type: Spontaneous
  Country: US (occurrence: US)
  Receive Date: 20191105
  Receipt Date: 20191105
  Transmission Date: 20200122
  Serious: No
  Sender: FDA-Public Use
  Company Number: US-RADIUS HEALTH INC.-2019US002931

PATIENT
  Sex: Female

DRUGS (1)
  1. TYMLOS [Suspect]
     Active Substance: ABALOPARATIDE
     Indication: OSTEOPOROSIS POSTMENOPAUSAL
     Dosage: 80 MCG, QD
     Route: 058
     Dates: start: 20190804

REACTIONS (7)
  - Back pain [Unknown]
  - Product dose omission [Unknown]
  - Hallucination [Unknown]
  - Bone pain [Unknown]
  - Decreased activity [Unknown]
  - Asthenia [Unknown]
  - Hypoacusis [Unknown]
